FAERS Safety Report 5990376-6 (Version None)
Quarter: 2008Q4

REPORT INFORMATION
  Report Type: 
  Country: None (occurrence: None)
  Receive Date: 20081209
  Receipt Date: 20081125
  Transmission Date: 20090506
  Serious: Yes (Death, Hospitalization)
  Sender: FDA-Public Use
  Company Number: 1000001834

PATIENT
  Age: 75 Year
  Sex: Female

DRUGS (2)
  1. CITALOPRAM HYDROBROMIDE [Suspect]
     Indication: PARKINSON'S DISEASE
     Dosage: 1 DOSAGE FORMS (1 DOSAGE FORMS, 1 IN 1 D, ORAL)
     Route: 048
  2. PAMOL [Concomitant]

REACTIONS (3)
  - CONDITION AGGRAVATED [None]
  - FATIGUE [None]
  - MALAISE [None]
